FAERS Safety Report 23221009 (Version 2)
Quarter: 2024Q2

REPORT INFORMATION
  Report Type: Spontaneous
  Country: DE (occurrence: DE)
  Receive Date: 20231123
  Receipt Date: 20240614
  Transmission Date: 20240716
  Serious: Yes (Death, Hospitalization, Other)
  Sender: FDA-Public Use
  Company Number: DE-KRKA-DE2023K06422STU

PATIENT
  Age: 77 Year
  Sex: Female
  Weight: 50 kg

DRUGS (7)
  1. LENALIDOMIDE [Suspect]
     Active Substance: LENALIDOMIDE
     Indication: Diffuse large B-cell lymphoma
     Dosage: 15 MILLIGRAM, ONCE A DAY,15MG PER DAY ON CYCLE DAYS 1 TO 21 OF A 21 DAYS LONG CYCLE
     Route: 065
     Dates: start: 20221025, end: 20231025
  2. LENALIDOMIDE [Suspect]
     Active Substance: LENALIDOMIDE
     Dosage: 10 MILLIGRAM, ONCE A DAY,10 PER DAY ON CYCLE DAYS 1 TO 21 OF A 21 DAYS LONG CYCLE
     Route: 065
     Dates: start: 20231026
  3. PREDNISOLONE [Suspect]
     Active Substance: PREDNISOLONE
     Indication: Diffuse large B-cell lymphoma
     Dosage: 2 MILLIGRAM, ONCE A DAY,2 MG, PER DAY ON CYCLE DAYS 1-15 OF A 21 DAYS LONG CYCLE
     Route: 065
     Dates: end: 20230628
  4. TAFASITAMAB [Suspect]
     Active Substance: TAFASITAMAB
     Indication: Diffuse large B-cell lymphoma
     Dosage: 600 MILLIGRAM, ONCE A DAY,600 MG, PER DAY ON CYCLE DAYS 1-15 OF A 21 DAYS LONG CYCLE
     Route: 065
     Dates: start: 20221026, end: 20230628
  5. CHOLECALCIFEROL [Concomitant]
     Active Substance: CHOLECALCIFEROL
     Indication: Product used for unknown indication
     Dosage: UNK
     Route: 065
  6. PANTOPRAZOLE [Concomitant]
     Active Substance: PANTOPRAZOLE
     Indication: Product used for unknown indication
     Dosage: UNK
     Route: 065
  7. ALLOPURINOL [Concomitant]
     Active Substance: ALLOPURINOL
     Indication: Product used for unknown indication
     Dosage: UNK
     Route: 065

REACTIONS (7)
  - Circulatory collapse [Fatal]
  - Abdominal pain [Recovering/Resolving]
  - Gastrointestinal disorder [Recovering/Resolving]
  - Leukopenia [Not Recovered/Not Resolved]
  - Neutropenia [Not Recovered/Not Resolved]
  - Off label use [Unknown]
  - Coronavirus infection [Recovered/Resolved]

NARRATIVE: CASE EVENT DATE: 20230304
